FAERS Safety Report 6827714-8 (Version None)
Quarter: 2010Q3

REPORT INFORMATION
  Report Type: 
  Country: None (occurrence: None)
  Receive Date: 20100709
  Receipt Date: 20070125
  Transmission Date: 20110219
  Serious: No
  Sender: FDA-Public Use
  Company Number: US-PFIZER INC-2007008250

PATIENT
  Sex: Female
  Weight: 106.59 kg

DRUGS (4)
  1. CHANTIX [Suspect]
     Indication: SMOKING CESSATION THERAPY
     Dates: start: 20070103
  2. BUSPAR [Concomitant]
  3. LUNESTA [Concomitant]
  4. ALL OTHER THERAPEUTIC PRODUCTS [Concomitant]

REACTIONS (4)
  - FEELING ABNORMAL [None]
  - ORAL DISCOMFORT [None]
  - SENSORY DISTURBANCE [None]
  - TONGUE DISORDER [None]
